FAERS Safety Report 17572298 (Version 1)
Quarter: 2020Q1

REPORT INFORMATION
  Report Type: Spontaneous
  Country: CA (occurrence: CA)
  Receive Date: 20200323
  Receipt Date: 20200323
  Transmission Date: 20200409
  Serious: Yes (Death, Hospitalization, Other)
  Sender: FDA-Public Use
  Company Number: NVSC2020CA078036

PATIENT
  Age: 75 Year
  Sex: Male

DRUGS (3)
  1. SANDOSTATIN [Suspect]
     Active Substance: OCTREOTIDE ACETATE
     Indication: PANCREATIC NEUROENDOCRINE TUMOUR
     Dosage: 30 MG, QMO
     Route: 030
  2. BISOPROLOL [Suspect]
     Active Substance: BISOPROLOL
     Indication: PRODUCT USED FOR UNKNOWN INDICATION
     Dosage: 5 MG, QD
     Route: 065
  3. ELIQUIS [Concomitant]
     Active Substance: APIXABAN
     Indication: PRODUCT USED FOR UNKNOWN INDICATION
     Dosage: 2.5 MG, QD
     Route: 065

REACTIONS (22)
  - Decreased appetite [Fatal]
  - Epistaxis [Fatal]
  - Pancreatic neuroendocrine tumour [Fatal]
  - Swelling [Fatal]
  - Confusional state [Fatal]
  - Death [Fatal]
  - Blood iron decreased [Fatal]
  - Dyspnoea [Fatal]
  - Upper limb fracture [Fatal]
  - Blood glucose increased [Fatal]
  - Herpes zoster [Fatal]
  - Asthenia [Fatal]
  - Injection site pain [Fatal]
  - Malignant neoplasm progression [Fatal]
  - Weight decreased [Fatal]
  - Fall [Fatal]
  - Fatigue [Fatal]
  - Pericardial effusion [Fatal]
  - Arthralgia [Fatal]
  - Blood pressure systolic increased [Fatal]
  - Haemoglobin decreased [Fatal]
  - Musculoskeletal pain [Fatal]
